FAERS Safety Report 19412314 (Version 20)
Quarter: 2022Q3

REPORT INFORMATION
  Report Type: Report from Study
  Country: KR (occurrence: None)
  Receive Date: 20210614
  Receipt Date: 20220928
  Transmission Date: 20221027
  Serious: Yes (Hospitalization)
  Sender: FDA-Public Use
  Company Number: KR-EISAI MEDICAL RESEARCH-EC-2021-094313

PATIENT
  Age: 81 Year
  Sex: Female
  Weight: 66.8 kg

DRUGS (31)
  1. LENVATINIB [Suspect]
     Active Substance: LENVATINIB
     Indication: Adenocarcinoma gastric
     Route: 048
     Dates: start: 20210512, end: 20210602
  2. LENVATINIB [Suspect]
     Active Substance: LENVATINIB
     Indication: Oesophageal adenocarcinoma
     Dosage: STARTING DOSE: 6 MG, FLUCTUATED DOSAGE
     Route: 048
     Dates: start: 20210607
  3. PEMBROLIZUMAB [Suspect]
     Active Substance: PEMBROLIZUMAB
     Indication: Adenocarcinoma gastric
     Route: 042
     Dates: start: 20210512, end: 20210512
  4. PEMBROLIZUMAB [Suspect]
     Active Substance: PEMBROLIZUMAB
     Indication: Oesophageal adenocarcinoma
     Route: 042
     Dates: start: 20210709
  5. OXALIPLATIN [Suspect]
     Active Substance: OXALIPLATIN
     Indication: Adenocarcinoma gastric
     Dosage: UNKNOWN
     Route: 042
     Dates: start: 20210512, end: 20210512
  6. OXALIPLATIN [Suspect]
     Active Substance: OXALIPLATIN
     Indication: Oesophageal adenocarcinoma
     Dosage: UNKNOWN
     Route: 042
     Dates: start: 20210602, end: 20210602
  7. OXALIPLATIN [Suspect]
     Active Substance: OXALIPLATIN
     Dosage: UNKNOWN
     Route: 042
     Dates: start: 20210625, end: 20210813
  8. LEUCOVORIN [Suspect]
     Active Substance: LEUCOVORIN
     Indication: Adenocarcinoma gastric
     Dosage: UNKNOWN
     Route: 042
     Dates: start: 20210512, end: 20210512
  9. LEUCOVORIN [Suspect]
     Active Substance: LEUCOVORIN
     Indication: Oesophageal adenocarcinoma
     Dosage: UNKNOWN
     Route: 042
     Dates: start: 20210602, end: 20210602
  10. LEUCOVORIN [Suspect]
     Active Substance: LEUCOVORIN
     Dosage: UNKNOWN
     Route: 042
     Dates: start: 20210625, end: 20210813
  11. FLUOROURACIL [Suspect]
     Active Substance: FLUOROURACIL
     Indication: Adenocarcinoma gastric
     Dosage: UNKNOWN BOLUS
     Route: 040
     Dates: start: 20210512, end: 20210512
  12. FLUOROURACIL [Suspect]
     Active Substance: FLUOROURACIL
     Indication: Oesophageal adenocarcinoma
     Dosage: UNKNOWN
     Route: 042
     Dates: start: 20210512, end: 20210514
  13. FLUOROURACIL [Suspect]
     Active Substance: FLUOROURACIL
     Dosage: UNKNOWN BOLUS
     Route: 040
     Dates: start: 20210602, end: 20210602
  14. FLUOROURACIL [Suspect]
     Active Substance: FLUOROURACIL
     Dosage: UNKNOWN
     Route: 042
     Dates: start: 20210602, end: 20210604
  15. FLUOROURACIL [Suspect]
     Active Substance: FLUOROURACIL
     Dosage: UNKNOWN BLOUS
     Route: 040
     Dates: start: 20210625, end: 20210813
  16. FLUOROURACIL [Suspect]
     Active Substance: FLUOROURACIL
     Dosage: UNKNOWN
     Route: 042
     Dates: start: 20210625, end: 20210813
  17. NALOXONE HYDROCHLORIDE\OXYCODONE HYDROCHLORIDE [Concomitant]
     Active Substance: NALOXONE HYDROCHLORIDE\OXYCODONE HYDROCHLORIDE
     Dates: start: 20210514, end: 20210610
  18. CRESTOR [Concomitant]
     Active Substance: ROSUVASTATIN CALCIUM
     Dates: start: 200105
  19. DICAMAX [Concomitant]
     Dates: start: 200505
  20. LAMINA-G [Concomitant]
     Dates: start: 20210419, end: 20210609
  21. NORZYME [Concomitant]
     Dates: start: 20210423, end: 20210520
  22. LANSOPRAZOLE [Concomitant]
     Active Substance: LANSOPRAZOLE
     Dates: start: 20210511, end: 20210723
  23. OXYCODONE HYDROCHLORIDE [Concomitant]
     Active Substance: OXYCODONE HYDROCHLORIDE
     Dates: start: 20210514, end: 20210610
  24. MEGACE F [Concomitant]
     Dates: start: 20210515, end: 20210529
  25. TYLENOL 8HR [Concomitant]
     Active Substance: ACETAMINOPHEN
     Dates: start: 20210526, end: 20210529
  26. MAGNESIUM OXIDE [Concomitant]
     Active Substance: MAGNESIUM OXIDE
     Dates: start: 20210526, end: 20211214
  27. FILGRASTIM [Concomitant]
     Active Substance: FILGRASTIM
     Route: 058
     Dates: start: 20210526, end: 20210526
  28. MICARDIS [Concomitant]
     Active Substance: TELMISARTAN
     Dates: start: 200105, end: 20210903
  29. ALOXI [Concomitant]
     Active Substance: PALONOSETRON HYDROCHLORIDE
     Route: 042
     Dates: start: 20210602, end: 20210602
  30. NORVASC [Concomitant]
     Active Substance: AMLODIPINE BESYLATE
     Dates: start: 20210512, end: 20210903
  31. LEVOTHYROXINE SODIUM [Concomitant]
     Active Substance: LEVOTHYROXINE SODIUM
     Dates: start: 202105, end: 20210609

REACTIONS (1)
  - Hypertension [Recovered/Resolved]

NARRATIVE: CASE EVENT DATE: 20210602
